FAERS Safety Report 4332645-1 (Version None)
Quarter: 2004Q2

REPORT INFORMATION
  Report Type: 
  Country: None (occurrence: None)
  Receive Date: 20040401
  Receipt Date: 20040316
  Transmission Date: 20050107
  Serious: Yes (Life-Threatening, Hospitalization)
  Sender: FDA-Public Use
  Company Number: 8004652

PATIENT
  Age: 38 Year
  Sex: Female

DRUGS (4)
  1. KEPPRA [Suspect]
     Indication: EPILEPSY
     Dosage: 1500 MG PO
     Route: 048
     Dates: start: 20030301, end: 20030801
  2. KEPPRA [Suspect]
     Indication: EPILEPSY
     Dosage: 1500 MG 2/D PO
     Route: 048
     Dates: start: 20030905, end: 20031113
  3. TRILEPTAL [Suspect]
     Indication: EPILEPSY
     Dosage: 900 MG 4/D PO
     Route: 048
     Dates: start: 20000101, end: 20030801
  4. TRILEPTAL [Suspect]
     Indication: EPILEPSY
     Dosage: 2400 MG /D PC
     Dates: start: 20030905, end: 20031113

REACTIONS (15)
  - APHASIA [None]
  - ASPIRATION [None]
  - CONVULSION [None]
  - CYANOSIS [None]
  - HALLUCINATION, VISUAL [None]
  - HEMIPLEGIA [None]
  - HEPATIC FAILURE [None]
  - HEPATITIS [None]
  - HEPATOCELLULAR DAMAGE [None]
  - HYPOXIA [None]
  - PNEUMONIA [None]
  - PSYCHOTIC DISORDER [None]
  - RESPIRATORY FAILURE [None]
  - STATUS EPILEPTICUS [None]
  - TONGUE BITING [None]
